FAERS Safety Report 7282650-0 (Version None)
Quarter: 2011Q1

REPORT INFORMATION
  Report Type: 
  Country: None (occurrence: None)
  Receive Date: 20110209
  Receipt Date: 20110203
  Transmission Date: 20110831
  Serious: Yes (Hospitalization)
  Sender: FDA-Public Use
  Company Number: FR-SANOFI-AVENTIS-2010SA062343

PATIENT
  Age: 69 Year
  Sex: Female

DRUGS (10)
  1. CORTANCYL [Suspect]
     Indication: RHEUMATOID ARTHRITIS
     Route: 048
  2. VALACICLOVIR [Concomitant]
     Route: 048
     Dates: start: 20100820
  3. ARAVA [Suspect]
     Indication: RHEUMATOID ARTHRITIS
     Route: 048
  4. TAREG [Concomitant]
     Route: 048
  5. CALCIUM CARBONATE [Concomitant]
  6. MABTHERA [Suspect]
     Indication: RHEUMATOID ARTHRITIS
     Route: 042
     Dates: end: 20100722
  7. OFLOXACIN [Concomitant]
     Route: 048
     Dates: start: 20100820
  8. OESCLIM [Suspect]
     Indication: HORMONE REPLACEMENT THERAPY
     Route: 062
  9. DAFALGAN [Concomitant]
     Indication: RHEUMATOID ARTHRITIS
  10. ACTONEL [Suspect]
     Indication: OSTEOPOROSIS
     Route: 048
     Dates: start: 20060101, end: 20090101

REACTIONS (4)
  - GINGIVITIS ULCERATIVE [None]
  - PERIODONTAL DISEASE [None]
  - NECROSIS [None]
  - OSTEONECROSIS [None]
